FAERS Safety Report 4477570-0 (Version None)
Quarter: 2004Q4

REPORT INFORMATION
  Report Type: 
  Country: None (occurrence: None)
  Receive Date: 20041012
  Receipt Date: 20040927
  Transmission Date: 20050328
  Serious: No
  Sender: FDA-Public Use
  Company Number: 2004071428

PATIENT
  Age: 3 Month
  Sex: 0

DRUGS (2)
  1. PSEUDOEPHEDRINE HCL [Suspect]
     Indication: OVERDOSE
     Dosage: ORAL
     Route: 048
  2. PARACETAMOL/PSEUDOEPHEDRINE (ETHANOL) (PARACETAMOL, PSEUDOEPHEDRINE)) [Suspect]
     Indication: OVERDOSE
     Dosage: ORAL
     Route: 048

REACTIONS (1)
  - OVERDOSE [None]
